FAERS Safety Report 19709827 (Version 5)
Quarter: 2021Q4

REPORT INFORMATION
  Report Type: Report from Study
  Country: DE (occurrence: DE)
  Receive Date: 20210816
  Receipt Date: 20211221
  Transmission Date: 20220303
  Serious: Yes (Other)
  Sender: FDA-Public Use
  Company Number: DE-002147023-NVSC2019DE020628

PATIENT
  Sex: Female
  Weight: 80 kg

DRUGS (9)
  1. LETROZOLE [Suspect]
     Active Substance: LETROZOLE
     Indication: Breast cancer metastatic
     Dosage: 2.5 MILLIGRAM, QD, (2.5 MG, QD)/ START DATE: 01-OCT-2019
     Route: 048
  2. KISQALI [Suspect]
     Active Substance: RIBOCICLIB
     Indication: Breast cancer metastatic
     Dosage: 400 MG, QD (SCHEMA 21 DAYS INTAKE, 7 DAYS PAUSE)/START DATE:01-OCT-2019
     Route: 048
     Dates: end: 20191125
  3. KISQALI [Suspect]
     Active Substance: RIBOCICLIB
     Dosage: 600 MG, QD ((SCHEMA 21 DAYS INTAKE, 7 DAYS PAUSE)/26-NOV-2019
     Route: 048
     Dates: end: 20191223
  4. KISQALI [Suspect]
     Active Substance: RIBOCICLIB
     Dosage: 600 MG, QD (SCHEMA 21 DAYS INTAKE, 7 DAYS PAUSE))/31-DEC-2019
     Route: 048
     Dates: end: 20210125
  5. KISQALI [Suspect]
     Active Substance: RIBOCICLIB
     Dosage: 600 MG, QD (SCHEMA 21 DAYS INTAKE, 7 DAYS PAUSE))/04-FEB-2021
     Route: 048
     Dates: end: 20210526
  6. KISQALI [Suspect]
     Active Substance: RIBOCICLIB
     Dosage: 600 MG, QD (SCHEMA 21 DAYS INTAKE, 7 DAYS PAUSE)/03-JUN-2021
     Route: 048
     Dates: end: 20210728
  7. KISQALI [Suspect]
     Active Substance: RIBOCICLIB
     Dosage: 600 MILLIGRAM, QD (SCHEMA 21 DAYS INTAKE, 7 DAYS PAUSE)/05-AUG-2021
     Route: 048
     Dates: end: 20210929
  8. KISQALI [Suspect]
     Active Substance: RIBOCICLIB
     Dosage: 600 MG, QD (SCHEMA 21 DAYS INTAKE, 7 DAYS PAUSE)/07-OCT-2021
     Route: 048
  9. DENOSUMAB [Concomitant]
     Active Substance: DENOSUMAB
     Indication: Metastases to bone
     Dosage: 120 MILLIGRAM, MONTHLY, (START DATE 14-OCT-2019)
     Route: 058

REACTIONS (7)
  - Pelvic fracture [Recovered/Resolved]
  - Thrombocytopenia [Not Recovered/Not Resolved]
  - Eastern Cooperative Oncology Group performance status worsened [Recovered/Resolved]
  - Neutropenia [Recovering/Resolving]
  - Leukopenia [Recovering/Resolving]
  - Deep vein thrombosis [Recovered/Resolved]
  - Hypocalcaemia [Not Recovered/Not Resolved]

NARRATIVE: CASE EVENT DATE: 20191007
